FAERS Safety Report 11263128 (Version 2)
Quarter: 2015Q3

REPORT INFORMATION
  Report Type: Spontaneous
  Country: JP (occurrence: JP)
  Receive Date: 20150710
  Receipt Date: 20150728
  Transmission Date: 20151125
  Serious: Yes (Hospitalization)
  Sender: FDA-Public Use
  Company Number: JP-SA-2015SA097324

PATIENT
  Age: 70 Year
  Sex: Female

DRUGS (3)
  1. CLOPIDOGREL BISULFATE. [Suspect]
     Active Substance: CLOPIDOGREL BISULFATE
     Route: 048
  2. ATORVASTATIN [Concomitant]
     Active Substance: ATORVASTATIN
     Route: 048
  3. ESOMEPRAZOLE [Concomitant]
     Active Substance: ESOMEPRAZOLE
     Route: 048

REACTIONS (7)
  - Back pain [Recovered/Resolved]
  - Extravasation [Recovered/Resolved]
  - Mucosal erosion [Unknown]
  - Haematemesis [Recovered/Resolved]
  - Mediastinal haematoma [Recovered/Resolved]
  - Scar [Unknown]
  - Oesophageal stenosis [Unknown]
